FAERS Safety Report 6772895-8 (Version None)
Quarter: 2010Q2

REPORT INFORMATION
  Report Type: 
  Country: None (occurrence: None)
  Receive Date: 20100616
  Receipt Date: 20100604
  Transmission Date: 20101027
  Serious: No
  Sender: FDA-Public Use
  Company Number: US-B.I. PHARMACEUTICALS,INC./RIDGEFIELD-2010-BP-06425BP

PATIENT

DRUGS (5)
  1. VIRAMUNE [Suspect]
     Dosage: 400 MG
     Route: 048
     Dates: start: 20020501
  2. COMBIVIR [Suspect]
     Dosage: TWICE A DAY
     Dates: start: 20020501
  3. LIPITOR [Concomitant]
     Indication: HYPERTENSION
  4. BYSTOLIC [Concomitant]
     Indication: HYPERTENSION
  5. EFFEXOR [Concomitant]
     Indication: DEPRESSION

REACTIONS (1)
  - NEUROPATHY PERIPHERAL [None]
